FAERS Safety Report 7487535-2 (Version None)
Quarter: 2011Q2

REPORT INFORMATION
  Report Type: 
  Country: None (occurrence: None)
  Receive Date: 20110511
  Receipt Date: 20110428
  Transmission Date: 20111010
  Serious: Yes (Other)
  Sender: FDA-Public Use
  Company Number: 2011AP000872

PATIENT

DRUGS (2)
  1. SERTRALINE HYDROCHLORIDE [Suspect]
     Indication: OBSESSIVE-COMPULSIVE DISORDER
  2. FLUOXETINE [Concomitant]

REACTIONS (4)
  - LIP SWELLING [None]
  - RASH [None]
  - VASCULITIS [None]
  - EYE SWELLING [None]
